FAERS Safety Report 13401506 (Version 3)
Quarter: 2017Q2

REPORT INFORMATION
  Report Type: Spontaneous
  Country: US (occurrence: US)
  Receive Date: 20170404
  Receipt Date: 20170620
  Transmission Date: 20170830
  Serious: Yes (Other)
  Sender: FDA-Public Use
  Company Number: US-PFIZER INC-2017137042

PATIENT
  Sex: Female

DRUGS (1)
  1. CORTEF [Suspect]
     Active Substance: HYDROCORTISONE
     Dosage: 5 MG

REACTIONS (4)
  - Tumour flare [Unknown]
  - Condition aggravated [Unknown]
  - Hormone level abnormal [Unknown]
  - Cushing^s syndrome [Unknown]
